FAERS Safety Report 9709747 (Version 1)
Quarter: 2013Q4

REPORT INFORMATION
  Report Type: Spontaneous
  Country: NL (occurrence: NL)
  Receive Date: 20131126
  Receipt Date: 20131126
  Transmission Date: 20140711
  Serious: Yes (Hospitalization)
  Sender: FDA-Public Use
  Company Number: NL-ASTRAZENECA-2013SE84784

PATIENT
  Age: 54 Year
  Sex: Male

DRUGS (2)
  1. ESOMEPRAZOLE [Suspect]
     Route: 048
     Dates: start: 20131002, end: 20131011
  2. BELATACEPT [Suspect]
     Indication: RENAL TRANSPLANT
     Route: 042
     Dates: start: 20131002

REACTIONS (2)
  - Tubulointerstitial nephritis [Recovered/Resolved]
  - Therapeutic response unexpected [Unknown]
